FAERS Safety Report 9100313 (Version 1)
Quarter: 2013Q1

REPORT INFORMATION
  Report Type: Spontaneous
  Country: GB (occurrence: GB)
  Receive Date: 20130214
  Receipt Date: 20130214
  Transmission Date: 20140127
  Serious: Yes (Other)
  Sender: FDA-Public Use
  Company Number: GB-B.I. PHARMACEUTICALS,INC./RIDGEFIELD-2013-UK-00208UK

PATIENT
  Sex: Male

DRUGS (1)
  1. MIRAPEXIN [Suspect]

REACTIONS (2)
  - Intestinal resection [Unknown]
  - Enterostomy [Unknown]
